FAERS Safety Report 21905116 (Version 1)
Quarter: 2023Q1

REPORT INFORMATION
  Report Type: Spontaneous
  Country: US (occurrence: None)
  Receive Date: 20230123
  Receipt Date: 20230123
  Transmission Date: 20230417
  Serious: Yes (Life-Threatening, Hospitalization, Disabling)
  Sender: FDA-Public Use
  Company Number: None

PATIENT
  Age: 66 Year
  Sex: Male
  Weight: 96 kg

DRUGS (2)
  1. MAVACAMTEN [Suspect]
     Active Substance: MAVACAMTEN
     Indication: Hypertrophic cardiomyopathy
  2. CLARITHROMYCIN [Suspect]
     Active Substance: CLARITHROMYCIN
     Indication: Helicobacter infection
     Dates: start: 20221221, end: 20230103

REACTIONS (10)
  - Labelled drug-drug interaction medication error [None]
  - Dyspnoea [None]
  - Cardiac failure congestive [None]
  - Ejection fraction decreased [None]
  - Atrial fibrillation [None]
  - Cardiogenic shock [None]
  - Ischaemic hepatitis [None]
  - Renal tubular necrosis [None]
  - Renal failure [None]
  - Haemodialysis [None]

NARRATIVE: CASE EVENT DATE: 20230101
